FAERS Safety Report 6153377-3 (Version None)
Quarter: 2009Q2

REPORT INFORMATION
  Report Type: 
  Country: None (occurrence: None)
  Receive Date: 20090413
  Receipt Date: 20090401
  Transmission Date: 20091009
  Serious: Yes (Hospitalization)
  Sender: FDA-Public Use
  Company Number: FR-BRISTOL-MYERS SQUIBB COMPANY-14570618

PATIENT
  Age: 50 Year
  Sex: Female

DRUGS (5)
  1. IXABEPILONE [Suspect]
     Indication: BREAST CANCER METASTATIC
     Route: 042
     Dates: start: 20090326, end: 20090326
  2. CETUXIMAB [Suspect]
     Indication: BREAST CANCER METASTATIC
     Route: 042
     Dates: start: 20090326, end: 20090326
  3. PROFENID [Concomitant]
     Dates: start: 20090327
  4. MOPRAL [Concomitant]
     Dates: start: 20090301
  5. SPASFON [Concomitant]
     Dates: start: 20090301

REACTIONS (3)
  - DIARRHOEA [None]
  - NEUTROPENIA [None]
  - RECTAL HAEMORRHAGE [None]
